FAERS Safety Report 5480053-2 (Version None)
Quarter: 2007Q4

REPORT INFORMATION
  Report Type: 
  Country: None (occurrence: None)
  Receive Date: 20071008
  Receipt Date: 20070926
  Transmission Date: 20080405
  Serious: Yes (Hospitalization)
  Sender: FDA-Public Use
  Company Number: GB-PFIZER INC-2007081169

PATIENT
  Sex: Male

DRUGS (8)
  1. SU-011,248 [Suspect]
     Indication: RENAL CELL CARCINOMA STAGE UNSPECIFIED
     Route: 048
  2. PENICILLIN [Concomitant]
     Route: 048
  3. MORPHINE SULFATE [Concomitant]
     Route: 048
  4. ZOPICLONE [Concomitant]
     Route: 048
  5. LANSOPRAZOLE [Concomitant]
     Route: 048
  6. ORAMORPH SR [Concomitant]
     Route: 048
  7. LACTULOSE [Concomitant]
     Route: 048
  8. MORPHINE SULFATE [Concomitant]
     Route: 048

REACTIONS (2)
  - HAEMORRHAGE [None]
  - ULCER [None]
